FAERS Safety Report 5747592-8 (Version None)
Quarter: 2008Q2

REPORT INFORMATION
  Report Type: 
  Country: None (occurrence: None)
  Receive Date: 20080523
  Receipt Date: 20080514
  Transmission Date: 20081010
  Serious: Yes (Death, Other)
  Sender: FDA-Public Use
  Company Number: GR-AVENTIS-200814606GDDC

PATIENT
  Sex: Female

DRUGS (2)
  1. DOCETAXEL [Suspect]
     Indication: BREAST CANCER
     Dosage: DOSE: UNK
  2. ISOPHOSPHAMIDE [Suspect]
     Indication: BREAST CANCER
     Dosage: DOSE: UNK

REACTIONS (2)
  - HEPATIC FAILURE [None]
  - LEUKOPENIA [None]
